FAERS Safety Report 24418620 (Version 1)
Quarter: 2024Q4

REPORT INFORMATION
  Report Type: Spontaneous
  Country: DE (occurrence: DE)
  Receive Date: 20241009
  Receipt Date: 20241009
  Transmission Date: 20250115
  Serious: Yes (Life-Threatening, Hospitalization, Other)
  Sender: TEVA
  Company Number: None

PATIENT
  Age: 43 Year
  Sex: Female
  Weight: 84.8 kg

DRUGS (5)
  1. CARBOPLATIN [Suspect]
     Active Substance: CARBOPLATIN
     Indication: Triple negative breast cancer
     Dosage: A TOTAL OF 12 X ?WEEKLY DOSE
     Route: 042
     Dates: start: 202312, end: 202403
  2. PEMBROLIZUMAB [Suspect]
     Active Substance: PEMBROLIZUMAB
     Indication: Triple negative breast cancer
     Dosage: A TOTAL OF 16 TIMES
     Route: 042
     Dates: start: 202312, end: 202406
  3. PACLITAXEL [Suspect]
     Active Substance: PACLITAXEL
     Indication: Triple negative breast cancer
     Dosage: GIVEN A TOTAL OF 12 TIMES?WEEKLY DOSE
     Route: 042
     Dates: start: 202312, end: 202403
  4. CYCLOPHOSPHAMIDE [Suspect]
     Active Substance: CYCLOPHOSPHAMIDE
     Indication: Triple negative breast cancer
     Dosage: A TOTAL OF 4 TIMES
     Route: 042
     Dates: start: 202303, end: 202406
  5. EPIRUBICIN [Suspect]
     Active Substance: EPIRUBICIN
     Indication: Triple negative breast cancer
     Dosage: A TOTAL OF 4 TIMES
     Route: 042
     Dates: start: 202303, end: 202406

REACTIONS (2)
  - Nephrotic syndrome [Unknown]
  - Renal failure [Unknown]

NARRATIVE: CASE EVENT DATE: 20240714
